FAERS Safety Report 8625828-3 (Version None)
Quarter: 2012Q3

REPORT INFORMATION
  Report Type: 
  Country: None (occurrence: None)
  Receive Date: 20120827
  Receipt Date: 20120822
  Transmission Date: 20120928
  Serious: Yes (Hospitalization, Other)
  Sender: FDA-Public Use
  Company Number: JP-ROCHE-727087

PATIENT
  Sex: Male
  Weight: 59 kg

DRUGS (15)
  1. AMARYL [Concomitant]
     Route: 048
  2. TRANSAMINE CAP [Concomitant]
  3. CARBOPLATIN [Concomitant]
     Route: 041
     Dates: start: 20100810, end: 20100810
  4. ASPIRIN [Suspect]
     Indication: PRODUCT USED FOR UNKNOWN INDICATION
     Dosage: DOSE FORM: ENTERIC COATING DRUG
     Route: 048
  5. WARFARIN SODIUM [Suspect]
     Indication: PRODUCT USED FOR UNKNOWN INDICATION
     Route: 048
  6. CONIEL [Concomitant]
     Route: 048
  7. ALLOPURINOL [Concomitant]
     Route: 048
     Dates: start: 20100812, end: 20100823
  8. LASIX [Concomitant]
     Route: 048
  9. ADONA [Concomitant]
  10. CANDESARTAN CILEXETIL [Concomitant]
     Route: 048
  11. ALDACTONE [Concomitant]
     Route: 048
  12. BASEN [Concomitant]
     Route: 048
  13. GOSHA-JINKI-GAN [Concomitant]
     Route: 048
     Dates: start: 20100810, end: 20100823
  14. AVASTIN [Suspect]
     Indication: NON-SMALL CELL LUNG CANCER
     Route: 042
     Dates: start: 20100810, end: 20100810
  15. PACLITAXEL [Concomitant]
     Route: 041
     Dates: start: 20100810, end: 20100810

REACTIONS (9)
  - GASTROINTESTINAL HAEMORRHAGE [None]
  - DEPRESSED LEVEL OF CONSCIOUSNESS [None]
  - OXYGEN SATURATION DECREASED [None]
  - DYSPNOEA [None]
  - HAEMOPTYSIS [None]
  - EPISTAXIS [None]
  - CARDIO-RESPIRATORY ARREST [None]
  - WHITE BLOOD CELL COUNT DECREASED [None]
  - PULMONARY THROMBOSIS [None]
